FAERS Safety Report 6236737-1 (Version None)
Quarter: 2009Q2

REPORT INFORMATION
  Report Type: 
  Country: None (occurrence: None)
  Receive Date: 20090619
  Receipt Date: 20090615
  Transmission Date: 20091009
  Serious: No
  Sender: FDA-Public Use
  Company Number: US-JNJFOC-20090605570

PATIENT
  Sex: Male
  Weight: 109.77 kg

DRUGS (3)
  1. INVEGA [Suspect]
     Indication: AFFECTIVE DISORDER
     Route: 048
  2. LITHIUM CARBONATE [Concomitant]
     Indication: AFFECTIVE DISORDER
  3. AMBIEN [Concomitant]
     Indication: SLEEP DISORDER

REACTIONS (1)
  - DIARRHOEA [None]
